FAERS Safety Report 8145053-2 (Version None)
Quarter: 2012Q1

REPORT INFORMATION
  Report Type: 
  Country: None (occurrence: None)
  Receive Date: 20120103
  Receipt Date: 20111015
  Transmission Date: 20120608
  Serious: No
  Sender: FDA-Public Use
  Company Number: AE-2011-002350

PATIENT
  Sex: Male
  Weight: 108.8633 kg

DRUGS (10)
  1. PEGASYS [Concomitant]
  2. ABILIFY [Concomitant]
  3. BENTYL [Concomitant]
  4. CELEXA [Concomitant]
  5. PROPRANOLOL [Concomitant]
  6. INCIVEK [Suspect]
     Dosage: 2250 MG (750 MG, 1 IN 8 HR), ORAL
     Route: 048
     Dates: start: 20111006
  7. RIBAVIRIN [Concomitant]
  8. COGENTIN [Concomitant]
  9. TIGAN [Concomitant]
  10. NEXIUM [Concomitant]

REACTIONS (2)
  - ANAL PRURITUS [None]
  - ANORECTAL DISCOMFORT [None]
